FAERS Safety Report 11987770 (Version 1)
Quarter: 2016Q1

REPORT INFORMATION
  Report Type: Spontaneous
  Country: US (occurrence: None)
  Receive Date: 20160201
  Receipt Date: 20160201
  Transmission Date: 20160526
  Serious: Yes (Hospitalization)
  Sender: FDA-Public Use
  Company Number: DL2016-0052

PATIENT
  Age: 19 Year
  Sex: Female

DRUGS (3)
  1. METRONIDAZOLE. [Concomitant]
     Active Substance: METRONIDAZOLE
  2. MIFEPRISTONE [Suspect]
     Active Substance: MIFEPRISTONE
     Indication: ABORTION INDUCED
     Route: 048
     Dates: start: 20151221
  3. MISOPROSTOL. [Suspect]
     Active Substance: MISOPROSTOL
     Route: 002

REACTIONS (8)
  - Pelvic pain [None]
  - Vaginal discharge [None]
  - Vomiting [None]
  - Post procedural complication [None]
  - Abortion incomplete [None]
  - Endometritis [None]
  - Chills [None]
  - Hyperhidrosis [None]

NARRATIVE: CASE EVENT DATE: 20151228
